FAERS Safety Report 21705877 (Version 1)
Quarter: 2022Q4

REPORT INFORMATION
  Report Type: Spontaneous
  Country: US (occurrence: US)
  Receive Date: 20221209
  Receipt Date: 20221209
  Transmission Date: 20230112
  Serious: Yes (Life-Threatening, Hospitalization, Other)
  Sender: FDA-Public Use
  Company Number: US-GLENMARK PHARMACEUTICALS-2022GMK076904

PATIENT
  Age: 18 Year
  Sex: Female

DRUGS (1)
  1. METFORMIN HYDROCHLORIDE [Suspect]
     Active Substance: METFORMIN HYDROCHLORIDE
     Indication: Product used for unknown indication
     Dosage: OVER A HUNDRED METFORMIN 1000 MG TABLETS
     Route: 048

REACTIONS (6)
  - Suicide attempt [Unknown]
  - Toxicity to various agents [Recovered/Resolved]
  - Overdose [Unknown]
  - Hypotension [Recovering/Resolving]
  - Metabolic acidosis [Recovered/Resolved]
  - Lactic acidosis [Recovering/Resolving]
